FAERS Safety Report 13456366 (Version 1)
Quarter: 2017Q2

REPORT INFORMATION
  Report Type: Spontaneous
  Country: IT (occurrence: IT)
  Receive Date: 20170419
  Receipt Date: 20170419
  Transmission Date: 20170830
  Serious: Yes (Other)
  Sender: FDA-Public Use
  Company Number: IT-ALLERGAN-1714608US

PATIENT
  Age: 64 Year
  Sex: Female
  Weight: 75 kg

DRUGS (6)
  1. LEVOTHYROXINE SODIUM UNK [Suspect]
     Active Substance: LEVOTHYROXINE SODIUM
     Dosage: 2.5 ?G/KG, QD
     Route: 065
     Dates: start: 20081218
  2. LEVOTHYROXINE SODIUM UNK [Suspect]
     Active Substance: LEVOTHYROXINE SODIUM
     Dosage: 2.4 ?G/KG, QD
     Route: 065
     Dates: start: 20090528
  3. LEVOTHYROXINE SODIUM UNK [Suspect]
     Active Substance: LEVOTHYROXINE SODIUM
     Indication: PAPILLARY THYROID CANCER
     Dosage: 3 ?G/KG, QD
     Route: 065
     Dates: start: 20080305
  4. LEVOTHYROXINE SODIUM UNK [Suspect]
     Active Substance: LEVOTHYROXINE SODIUM
     Dosage: 2 ?G/KG, QD
     Route: 065
     Dates: start: 20150123
  5. LEVOTHYROXINE SODIUM UNK [Suspect]
     Active Substance: LEVOTHYROXINE SODIUM
     Dosage: 2.1 ?G/KG, QD
     Route: 065
     Dates: start: 20140321
  6. LEVOTHYROXINE SODIUM UNK [Suspect]
     Active Substance: LEVOTHYROXINE SODIUM
     Dosage: 2.3 ?G/KG, QD
     Route: 065
     Dates: start: 20110923

REACTIONS (7)
  - Angina pectoris [Recovering/Resolving]
  - Drug intolerance [Unknown]
  - Coronary artery disease [Unknown]
  - Atrial fibrillation [Unknown]
  - Malabsorption [Recovering/Resolving]
  - Condition aggravated [Unknown]
  - Ventricular extrasystoles [Recovering/Resolving]

NARRATIVE: CASE EVENT DATE: 2008
